FAERS Safety Report 8086400-X (Version None)
Quarter: 2012Q1

REPORT INFORMATION
  Report Type: 
  Country: None (occurrence: None)
  Receive Date: 20120128
  Receipt Date: 20110510
  Transmission Date: 20120608
  Serious: No
  Sender: FDA-Public Use
  Company Number: US-ABBOTT-11P-163-0724698-00

PATIENT
  Sex: Female
  Weight: 68.1 kg

DRUGS (3)
  1. SINGULAIR [Concomitant]
     Indication: SEASONAL ALLERGY
  2. HUMIRA [Suspect]
     Indication: PSORIASIS
     Route: 058
     Dates: start: 20090101, end: 20090301
  3. ZOLOFT [Concomitant]
     Indication: DEPRESSION

REACTIONS (3)
  - SMEAR CERVIX ABNORMAL [None]
  - BRONCHITIS [None]
  - PAPILLOMA VIRAL INFECTION [None]
